FAERS Safety Report 18667671 (Version 1)
Quarter: 2020Q4

REPORT INFORMATION
  Report Type: Spontaneous
  Country: CA (occurrence: CA)
  Receive Date: 20201228
  Receipt Date: 20201228
  Transmission Date: 20210114
  Serious: Yes (Hospitalization)
  Sender: FDA-Public Use
  Company Number: CA-009507513-2012CAN011368

PATIENT
  Age: 24 Year
  Sex: Female

DRUGS (1)
  1. DESLORATADINE (+) PSEUDOEPHEDRINE SULFATE [Suspect]
     Active Substance: DESLORATADINE\PSEUDOEPHEDRINE SULFATE
     Indication: EYE SWELLING
     Dosage: UNK
     Route: 048

REACTIONS (1)
  - Eye swelling [Recovering/Resolving]
